FAERS Safety Report 10068816 (Version 1)
Quarter: 2014Q2

REPORT INFORMATION
  Report Type: Spontaneous
  Country: DE (occurrence: DE)
  Receive Date: 20140409
  Receipt Date: 20140409
  Transmission Date: 20141212
  Serious: Yes (Other)
  Sender: FDA-Public Use
  Company Number: GXKR2014DE001527

PATIENT
  Sex: Male

DRUGS (1)
  1. THIAMAZOL HEXAL [Suspect]
     Dosage: 5 MG, UNK
     Route: 048

REACTIONS (1)
  - Convulsion [Unknown]
